FAERS Safety Report 24012554 (Version 1)
Quarter: 2024Q2

REPORT INFORMATION
  Report Type: Report from Study
  Country: US (occurrence: US)
  Receive Date: 20240626
  Receipt Date: 20240626
  Transmission Date: 20240716
  Serious: Yes (Other)
  Sender: FDA-Public Use
  Company Number: US-ABBVIE-5768001

PATIENT
  Sex: Female

DRUGS (1)
  1. SKYRIZI [Suspect]
     Active Substance: RISANKIZUMAB-RZAA
     Indication: Crohn^s disease
     Route: 058
     Dates: start: 20240318, end: 20240514

REACTIONS (13)
  - Cerebrovascular accident [Unknown]
  - Muscular weakness [Unknown]
  - Peripheral swelling [Unknown]
  - Bronchitis [Recovering/Resolving]
  - Diarrhoea [Recovering/Resolving]
  - Transient ischaemic attack [Recovering/Resolving]
  - Vertigo [Recovering/Resolving]
  - Thrombosis [Recovering/Resolving]
  - Sinusitis [Recovering/Resolving]
  - Frequent bowel movements [Unknown]
  - Malaise [Unknown]
  - Feeling hot [Unknown]
  - Eyelid ptosis [Unknown]

NARRATIVE: CASE EVENT DATE: 20240101
